FAERS Safety Report 25682538 (Version 2)
Quarter: 2025Q3

REPORT INFORMATION
  Report Type: Spontaneous
  Country: US (occurrence: US)
  Receive Date: 20250814
  Receipt Date: 20250817
  Transmission Date: 20251021
  Serious: Yes (Hospitalization, Other)
  Sender: MERCK SHARP & DOHME LLC
  Company Number: US-009507513-2317872

PATIENT
  Age: 72 Year
  Sex: Female

DRUGS (1)
  1. KEYTRUDA [Suspect]
     Active Substance: PEMBROLIZUMAB
     Indication: Lung adenocarcinoma stage IV

REACTIONS (10)
  - Pneumonia bacterial [Recovered/Resolved]
  - Viral upper respiratory tract infection [Unknown]
  - Pneumonia bacterial [Unknown]
  - Insomnia [Unknown]
  - Fatigue [Unknown]
  - Dermatitis [Unknown]
  - Product use issue [Unknown]
  - Positron emission tomogram abnormal [Unknown]
  - Breast cancer female [Unknown]
  - Ill-defined disorder [Unknown]
